FAERS Safety Report 6722746-2 (Version None)
Quarter: 2010Q2

REPORT INFORMATION
  Report Type: 
  Country: None (occurrence: None)
  Receive Date: 20100511
  Receipt Date: 20100503
  Transmission Date: 20101027
  Serious: Yes (Other)
  Sender: FDA-Public Use
  Company Number: 009692

PATIENT
  Sex: Female

DRUGS (4)
  1. BUSULFEX [Suspect]
     Dosage: 0.95 MG/KG, INTRAVENOUS
     Route: 042
  2. FLUDARABINE PHOSPHATE [Concomitant]
  3. CAMPATH [Concomitant]
  4. AZATHIOPRINE [Concomitant]

REACTIONS (1)
  - SPINAL FRACTURE [None]
